FAERS Safety Report 15411614 (Version 2)
Quarter: 2025Q1

REPORT INFORMATION
  Report Type: Spontaneous
  Country: RO (occurrence: RO)
  Receive Date: 20180921
  Receipt Date: 20250312
  Transmission Date: 20250409
  Serious: Yes (Life-Threatening, Hospitalization, Other)
  Sender: AUROBINDO
  Company Number: RO-AUROBINDO-AUR-APL-2018-045980

PATIENT
  Age: 33 Year
  Sex: Male

DRUGS (1)
  1. SERTRALINE [Suspect]
     Active Substance: SERTRALINE HYDROCHLORIDE
     Indication: Major depression
     Route: 065

REACTIONS (3)
  - Suicide attempt [Recovered/Resolved]
  - Psychotic disorder [Unknown]
  - Condition aggravated [Unknown]
